FAERS Safety Report 18746040 (Version 2)
Quarter: 2021Q1

REPORT INFORMATION
  Report Type: Spontaneous
  Country: JP (occurrence: JP)
  Receive Date: 20210115
  Receipt Date: 20210219
  Transmission Date: 20210419
  Serious: Yes (Hospitalization, Other)
  Sender: FDA-Public Use
  Company Number: JP-GLAXOSMITHKLINE-JP2021JPN007606

PATIENT
  Age: 45 Year
  Sex: Female

DRUGS (4)
  1. IMIGRAN [Suspect]
     Active Substance: SUMATRIPTAN SUCCINATE
     Indication: THUNDERCLAP HEADACHE
     Dosage: UNK
     Route: 048
  2. ESTROGEN PATCH [Concomitant]
     Active Substance: ESTRADIOL
     Indication: THUNDERCLAP HEADACHE
     Dosage: UNK
     Route: 050
  3. LEUPRORELIN ACETATE [Concomitant]
     Active Substance: LEUPROLIDE ACETATE
     Indication: ARTIFICIAL MENOPAUSE
     Dosage: UNK
  4. ESTROGEN PATCH [Concomitant]
     Active Substance: ESTRADIOL
     Indication: DIZZINESS

REACTIONS (4)
  - Reversible cerebral vasoconstriction syndrome [Recovering/Resolving]
  - Anaemia [Unknown]
  - Product use in unapproved indication [Unknown]
  - Quadriplegia [Recovering/Resolving]
